FAERS Safety Report 7733842-5 (Version None)
Quarter: 2011Q3

REPORT INFORMATION
  Report Type: 
  Country: None (occurrence: None)
  Receive Date: 20110901
  Receipt Date: 20110822
  Transmission Date: 20111222
  Serious: Yes (Hospitalization)
  Sender: FDA-Public Use
  Company Number: 1000022724

PATIENT
  Age: 63 Year
  Sex: Male

DRUGS (7)
  1. DILTIAZEM HCL [Suspect]
  2. AMINOPHYLLIN TAB [Concomitant]
  3. ENALAPRIL MALEATE [Suspect]
     Indication: HYPERTENSION
     Dosage: 20 MG (20 MG, 1 IN 1 D)
  4. TIOPRONIN [Concomitant]
  5. ASPIRIN [Suspect]
  6. FENOTEROL/IPRATROPIUM BROMIDE [Concomitant]
  7. SALMETEROL/FLUTICASONE PROPIONATE [Concomitant]

REACTIONS (5)
  - ANGIOEDEMA [None]
  - CHOKING [None]
  - HAEMOGLOBIN INCREASED [None]
  - C-REACTIVE PROTEIN INCREASED [None]
  - HAEMATOCRIT INCREASED [None]
